FAERS Safety Report 8169239-6 (Version None)
Quarter: 2012Q1

REPORT INFORMATION
  Report Type: 
  Country: None (occurrence: None)
  Receive Date: 20120228
  Receipt Date: 20120217
  Transmission Date: 20120608
  Serious: Yes (Other)
  Sender: FDA-Public Use
  Company Number: US-ASTRAZENECA-2012SE11631

PATIENT
  Age: 63 Year
  Sex: Female

DRUGS (5)
  1. TOPROL-XL [Suspect]
     Route: 048
  2. LISINOPRIL [Suspect]
     Route: 048
  3. FLU SHOT [Concomitant]
     Dates: start: 20111006
  4. TETANUS BOOSTER [Concomitant]
     Dates: start: 20060301
  5. PNEUMOVAX 23 [Concomitant]
     Dates: start: 20030401

REACTIONS (1)
  - DRUG HYPERSENSITIVITY [None]
